FAERS Safety Report 21300528 (Version 4)
Quarter: 2022Q4

REPORT INFORMATION
  Report Type: Report from Study
  Country: CA (occurrence: CA)
  Receive Date: 20220907
  Receipt Date: 20221202
  Transmission Date: 20230112
  Serious: Yes (Hospitalization)
  Sender: FDA-Public Use
  Company Number: CA-JNJFOC-20220753438

PATIENT
  Age: 50 Year
  Sex: Female
  Weight: 64.014 kg

DRUGS (1)
  1. REMICADE [Suspect]
     Active Substance: INFLIXIMAB
     Indication: Crohn^s disease
     Dosage: ON 09-AUG-2022, THE PATIENT HAS 29TH INFUSION OF REMICADE DOSE OF 300 MG AND PARTIAL HARVEY-BRADSHAW
     Route: 041
     Dates: start: 20180627

REACTIONS (3)
  - Crohn^s disease [Not Recovered/Not Resolved]
  - COVID-19 [Recovered/Resolved]
  - Constipation [Not Recovered/Not Resolved]

NARRATIVE: CASE EVENT DATE: 20220806
